FAERS Safety Report 9812663 (Version 2)
Quarter: 2014Q1

REPORT INFORMATION
  Report Type: Spontaneous
  Country: US (occurrence: US)
  Receive Date: 20140113
  Receipt Date: 20140113
  Transmission Date: 20141002
  Serious: No
  Sender: FDA-Public Use
  Company Number: US-ASTRAZENECA-2012SE00369

PATIENT
  Age: 72 Year
  Sex: Female
  Weight: 74.4 kg

DRUGS (16)
  1. CRESTOR [Suspect]
     Indication: BLOOD CHOLESTEROL ABNORMAL
     Route: 048
     Dates: start: 201108
  2. CRESTOR [Suspect]
     Indication: BLOOD CHOLESTEROL ABNORMAL
     Route: 048
     Dates: end: 20131227
  3. CRESTOR [Suspect]
     Indication: BLOOD CHOLESTEROL ABNORMAL
     Route: 048
     Dates: start: 20131229
  4. ATENOLOL [Suspect]
     Indication: BLOOD PRESSURE ABNORMAL
     Route: 048
     Dates: start: 2009
  5. WATER PILLS [Concomitant]
  6. IBUPROFEN [Concomitant]
     Indication: ARTHRITIS
  7. PILLS FOR ANXIETY [Concomitant]
  8. CO-Q-10 [Concomitant]
  9. AMLODIPINE [Concomitant]
     Indication: BLOOD PRESSURE ABNORMAL
  10. DIOVAN [Concomitant]
     Indication: BLOOD PRESSURE ABNORMAL
  11. FUROSEMIDE [Concomitant]
     Indication: DIURETIC THERAPY
  12. ALPRAZOLAM [Concomitant]
     Indication: ANXIETY
  13. VIT C [Concomitant]
  14. CALCIUM WITH VIT D [Concomitant]
  15. BABY ASPIRIN [Concomitant]
  16. FISH OIL [Concomitant]

REACTIONS (11)
  - Dry skin [Unknown]
  - Skin atrophy [Unknown]
  - Pain [Unknown]
  - Feeling hot [Not Recovered/Not Resolved]
  - Pruritus [Unknown]
  - Rash [Unknown]
  - Arthralgia [Not Recovered/Not Resolved]
  - Abdominal pain upper [Recovered/Resolved]
  - Muscular weakness [Not Recovered/Not Resolved]
  - Fatigue [Not Recovered/Not Resolved]
  - Intentional drug misuse [Not Recovered/Not Resolved]
